FAERS Safety Report 10608273 (Version 2)
Quarter: 2014Q4

REPORT INFORMATION
  Report Type: Report from Study
  Country: US (occurrence: US)
  Receive Date: 20141125
  Receipt Date: 20141125
  Transmission Date: 20150529
  Serious: Yes (Other)
  Sender: FDA-Public Use
  Company Number: US-ABBVIE-14K-163-1286606-00

PATIENT
  Age: 66 Year
  Sex: Female

DRUGS (1)
  1. HUMIRA [Suspect]
     Active Substance: ADALIMUMAB
     Indication: RHEUMATOID ARTHRITIS
     Route: 058
     Dates: start: 20140827, end: 20140915

REACTIONS (5)
  - Urticaria [Recovering/Resolving]
  - Cyst [Recovered/Resolved]
  - Melanocytic naevus [Recovering/Resolving]
  - Local swelling [Recovering/Resolving]
  - Cyst drainage [Recovering/Resolving]

NARRATIVE: CASE EVENT DATE: 20140827
